FAERS Safety Report 6382827-2 (Version None)
Quarter: 2009Q3

REPORT INFORMATION
  Report Type: 
  Country: None (occurrence: None)
  Receive Date: 20090930
  Receipt Date: 20090921
  Transmission Date: 20100115
  Serious: Yes (Hospitalization)
  Sender: FDA-Public Use
  Company Number: US-JNJFOC-20090906500

PATIENT
  Age: 16 Year
  Sex: Male

DRUGS (28)
  1. RISPERIDONE [Suspect]
     Route: 048
  2. RISPERIDONE [Suspect]
     Route: 048
  3. RISPERIDONE [Suspect]
     Route: 048
  4. RISPERIDONE [Suspect]
     Route: 048
  5. RISPERIDONE [Suspect]
     Route: 048
  6. RISPERIDONE [Suspect]
     Route: 048
  7. RISPERIDONE [Suspect]
     Indication: TOURETTE'S DISORDER
     Route: 048
  8. TOPIRAMATE [Suspect]
     Route: 065
  9. TOPIRAMATE [Suspect]
     Route: 065
  10. TOPIRAMATE [Suspect]
     Indication: APPETITE DISORDER
     Route: 065
  11. ARIPIPRAZOLE [Suspect]
     Indication: DRUG USE FOR UNKNOWN INDICATION
     Route: 065
  12. FLUOXETINE [Suspect]
     Route: 065
  13. FLUOXETINE [Suspect]
     Route: 065
  14. FLUOXETINE [Suspect]
     Indication: DRUG USE FOR UNKNOWN INDICATION
     Route: 065
  15. BENZOTROPINE [Suspect]
     Route: 065
  16. BENZOTROPINE [Suspect]
     Route: 065
  17. BENZOTROPINE [Suspect]
     Indication: TOURETTE'S DISORDER
     Route: 065
  18. FLUPHENAZINE [Suspect]
     Route: 065
  19. FLUPHENAZINE [Suspect]
     Route: 065
  20. FLUPHENAZINE [Suspect]
     Route: 065
  21. FLUPHENAZINE [Suspect]
     Indication: DRUG USE FOR UNKNOWN INDICATION
     Route: 065
  22. TETRABENAZINE [Suspect]
     Route: 065
  23. TETRABENAZINE [Suspect]
     Route: 065
  24. TETRABENAZINE [Suspect]
     Route: 065
  25. TETRABENAZINE [Suspect]
     Indication: DRUG USE FOR UNKNOWN INDICATION
     Route: 065
  26. PIMOZIDE [Concomitant]
     Route: 065
  27. PIMOZIDE [Concomitant]
     Indication: DRUG USE FOR UNKNOWN INDICATION
     Route: 065
  28. FISH OIL [Concomitant]

REACTIONS (11)
  - AFFECTIVE DISORDER [None]
  - ANXIETY [None]
  - BLOOD PROLACTIN INCREASED [None]
  - DEPRESSION [None]
  - GALACTORRHOEA [None]
  - LETHARGY [None]
  - OFF LABEL USE [None]
  - SUICIDAL IDEATION [None]
  - TIC [None]
  - URINARY RETENTION [None]
  - WEIGHT INCREASED [None]
